FAERS Safety Report 5037508-4 (Version None)
Quarter: 2006Q2

REPORT INFORMATION
  Report Type: 
  Country: None (occurrence: None)
  Receive Date: 20060609
  Receipt Date: 20060217
  Transmission Date: 20061013
  Serious: Yes (Life-Threatening, Hospitalization)
  Sender: FDA-Public Use
  Company Number: 046

PATIENT
  Sex: Female
  Weight: 80 kg

DRUGS (6)
  1. FAZACLO ODT [Suspect]
     Indication: BIPOLAR II DISORDER
     Dosage: 100 MG PO TID
     Route: 048
     Dates: start: 20060110, end: 20060117
  2. LEXAPRO [Concomitant]
  3. DEPAKOTE [Concomitant]
  4. DILANTIN [Concomitant]
  5. SINGULAIR [Concomitant]
  6. LEVOTHYROXINE SODIUM [Concomitant]

REACTIONS (1)
  - OVERDOSE [None]
